FAERS Safety Report 14373091 (Version 1)
Quarter: 2018Q1

REPORT INFORMATION
  Report Type: Spontaneous
  Country: US (occurrence: US)
  Receive Date: 20180110
  Receipt Date: 20180110
  Transmission Date: 20180509
  Serious: No
  Sender: FDA-Public Use
  Company Number: US-MYLANLABS-2017M1078542

PATIENT
  Age: 84 Year
  Sex: Female
  Weight: 66 kg

DRUGS (12)
  1. MEMANTINE. [Suspect]
     Active Substance: MEMANTINE
     Dosage: 1 TABLET IN THE MORNING AND 1 TABLET AT NIGHT, QD
     Route: 048
     Dates: start: 20170831
  2. SIMVASTATIN. [Concomitant]
     Active Substance: SIMVASTATIN
     Indication: BLOOD CHOLESTEROL ABNORMAL
     Dosage: 10 MG, QD
     Route: 048
  3. LOSARTAN. [Concomitant]
     Active Substance: LOSARTAN
     Indication: BLOOD PRESSURE ABNORMAL
     Dosage: 50 MG, QD
  4. MYRBETRIQ [Concomitant]
     Active Substance: MIRABEGRON
     Indication: INCONTINENCE
     Dosage: 50 MG, QD
     Route: 048
  5. MULTIVITAMIN [Concomitant]
     Active Substance: VITAMINS
     Indication: VITAMIN SUPPLEMENTATION
     Dosage: 1 DF, QD
     Route: 048
  6. MEMANTINE. [Suspect]
     Active Substance: MEMANTINE
     Indication: DEMENTIA
     Dosage: 1/2 AT NIGHT FOR 1 WEEK
     Route: 048
  7. MEMANTINE. [Suspect]
     Active Substance: MEMANTINE
     Dosage: 1/2 TABLET IN THE MORNING AND AT NIGHT FOR ONE WEEK
     Route: 048
  8. ZOLOFT [Suspect]
     Active Substance: SERTRALINE HYDROCHLORIDE
     Indication: DEPRESSION
     Dosage: 1 DF, QD
     Route: 048
     Dates: start: 20171117, end: 20171119
  9. ADVANTA CALCIUM + VITAMIN D3 [Concomitant]
     Dosage: OF VITAMIN D1000 IU, QD
     Route: 048
  10. ADVANTA CALCIUM + VITAMIN D3 [Concomitant]
     Indication: PRODUCT USED FOR UNKNOWN INDICATION
     Dosage: 500 MG, QD CALCIUM
     Route: 048
  11. VERAPAMIL [Suspect]
     Active Substance: VERAPAMIL HYDROCHLORIDE
     Indication: BLOOD PRESSURE ABNORMAL
     Dosage: UNK
     Route: 048
     Dates: start: 2016
  12. MEMANTINE. [Suspect]
     Active Substance: MEMANTINE
     Dosage: 1 FULL TABLET AT NIGHT AND A HALF TABLET IN THE MORNING FOR ONE WEEK
     Route: 048

REACTIONS (7)
  - Tremor [Unknown]
  - Fatigue [Unknown]
  - Limb discomfort [Unknown]
  - Dizziness [Unknown]
  - Mobility decreased [Unknown]
  - Somnolence [Recovering/Resolving]
  - Confusional state [Unknown]

NARRATIVE: CASE EVENT DATE: 20170831
